FAERS Safety Report 12934502 (Version 2)
Quarter: 2017Q1

REPORT INFORMATION
  Report Type: Report from Study
  Country: US (occurrence: US)
  Receive Date: 20161111
  Receipt Date: 20170103
  Transmission Date: 20170428
  Serious: Yes (Other)
  Sender: FDA-Public Use
  Company Number: US-JNJFOC-20161109508

PATIENT
  Age: 58 Year
  Sex: Male
  Weight: 103.42 kg

DRUGS (8)
  1. LOSARTAN POTASSIUM. [Concomitant]
     Active Substance: LOSARTAN POTASSIUM
     Indication: RHEUMATOID ARTHRITIS
     Route: 065
  2. SULFAZINE [Concomitant]
     Active Substance: SULFASALAZINE
     Indication: RHEUMATOID ARTHRITIS
     Route: 065
  3. SIMPONI ARIA [Suspect]
     Active Substance: GOLIMUMAB
     Indication: RHEUMATOID ARTHRITIS
     Dosage: RECEIVED TWICW, ONE MONTH APART
     Route: 042
     Dates: start: 20160714, end: 20160811
  4. HYDROCODONE [Concomitant]
     Active Substance: HYDROCODONE
     Indication: RHEUMATOID ARTHRITIS
     Route: 065
  5. GABAPENTIN. [Concomitant]
     Active Substance: GABAPENTIN
     Indication: RHEUMATOID ARTHRITIS
     Route: 065
  6. MELOXICAM. [Concomitant]
     Active Substance: MELOXICAM
     Indication: RHEUMATOID ARTHRITIS
     Route: 065
  7. LANSOPRAZOLE. [Concomitant]
     Active Substance: LANSOPRAZOLE
     Indication: RHEUMATOID ARTHRITIS
     Route: 065
  8. TRAMADOL. [Concomitant]
     Active Substance: TRAMADOL
     Indication: RHEUMATOID ARTHRITIS
     Route: 065

REACTIONS (1)
  - Squamous cell carcinoma of lung [Not Recovered/Not Resolved]

NARRATIVE: CASE EVENT DATE: 20160930
